FAERS Safety Report 21202160 (Version 1)
Quarter: 2022Q3

REPORT INFORMATION
  Report Type: Spontaneous
  Country: US (occurrence: None)
  Receive Date: 20220811
  Receipt Date: 20220811
  Transmission Date: 20221027
  Serious: Yes (Other)
  Sender: FDA-Public Use
  Company Number: None

PATIENT
  Age: 39 Year
  Sex: Female
  Weight: 86.6 kg

DRUGS (14)
  1. BENLYSTA [Suspect]
     Active Substance: BELIMUMAB
     Indication: Systemic lupus erythematosus
     Dosage: OTHER FREQUENCY : ONCE WEEKLY;?
     Route: 058
     Dates: start: 20220613, end: 20220804
  2. ALPRAZOLAM [Concomitant]
     Active Substance: ALPRAZOLAM
  3. GABAPENTIN [Concomitant]
     Active Substance: GABAPENTIN
  4. ASPIRIN [Concomitant]
     Active Substance: ASPIRIN
  5. HYDROCHLOROTHIAZIDE [Concomitant]
     Active Substance: HYDROCHLOROTHIAZIDE
  6. HYDROXYCHLOROQUINE [Concomitant]
     Active Substance: HYDROXYCHLOROQUINE
  7. LORATIDINE 10 MG [Concomitant]
  8. OMEPRAZOLE [Concomitant]
     Active Substance: OMEPRAZOLE
  9. PREDNISONE [Concomitant]
     Active Substance: PREDNISONE
  10. VITAMIN B12 [Concomitant]
     Active Substance: CYANOCOBALAMIN
  11. VITAMIN C [Concomitant]
     Active Substance: ASCORBIC ACID
  12. VITAMIN D3 [Concomitant]
     Active Substance: CHOLECALCIFEROL
  13. LOSARTAN [Concomitant]
     Active Substance: LOSARTAN
  14. IMURAN [Concomitant]
     Active Substance: AZATHIOPRINE

REACTIONS (2)
  - Urinary tract infection [None]
  - Upper respiratory tract infection [None]

NARRATIVE: CASE EVENT DATE: 20220804
